FAERS Safety Report 24443868 (Version 2)
Quarter: 2024Q4

REPORT INFORMATION
  Report Type: Report from Study
  Country: CA (occurrence: CA)
  Receive Date: 20241016
  Receipt Date: 20241017
  Transmission Date: 20250115
  Serious: No
  Sender: ROCHE
  Company Number: CA-ROCHE-2489041

PATIENT
  Age: 51 Year
  Sex: Female
  Weight: 51.0 kg

DRUGS (8)
  1. RITUXAN [Suspect]
     Active Substance: RITUXIMAB
     Indication: Neuromyelitis optica spectrum disorder
     Dosage: DAY 1 AND 15
     Route: 042
     Dates: start: 20140317, end: 20180404
  2. RITUXAN [Suspect]
     Active Substance: RITUXIMAB
     Dosage: PREVIOUS INFUSION WAS ON 04/APR/2018
     Route: 042
     Dates: start: 20190425
  3. ACETAMINOPHEN [Concomitant]
     Active Substance: ACETAMINOPHEN
     Indication: Premedication
     Route: 048
     Dates: start: 20140317
  4. DIPHENHYDRAMINE HYDROCHLORIDE [Concomitant]
     Active Substance: DIPHENHYDRAMINE HYDROCHLORIDE
     Indication: Premedication
     Route: 048
     Dates: start: 20140317
  5. DIPHENHYDRAMINE HYDROCHLORIDE [Concomitant]
     Active Substance: DIPHENHYDRAMINE HYDROCHLORIDE
     Route: 048
     Dates: start: 20190425
  6. IRON [Concomitant]
     Active Substance: IRON
  7. LYRICA [Concomitant]
     Active Substance: PREGABALIN
  8. METHYLPREDNISOLONE [Concomitant]
     Active Substance: METHYLPREDNISOLONE
     Indication: Premedication
     Route: 042
     Dates: start: 20140317

REACTIONS (2)
  - Off label use [Unknown]
  - No adverse event [Unknown]
